FAERS Safety Report 7037194-8 (Version None)
Quarter: 2010Q4

REPORT INFORMATION
  Report Type: 
  Country: None (occurrence: None)
  Receive Date: 20101011
  Receipt Date: 20100928
  Transmission Date: 20110411
  Serious: Yes (Hospitalization, Other)
  Sender: FDA-Public Use
  Company Number: US-ELI_LILLY_AND_COMPANY-US201007007225

PATIENT
  Sex: Female
  Weight: 82.268 kg

DRUGS (9)
  1. FORTEO [Suspect]
     Indication: OSTEOPOROSIS
     Dosage: 20 UG, DAILY (1/D)
  2. ALPRAZOLAM [Concomitant]
     Dosage: 0.5 MG, 4/D
  3. AVINZA [Concomitant]
  4. ACETAMINOPHEN AND HYDROCODONE BITARTRATE [Concomitant]
     Dosage: UNK, AS NEEDED
  5. HYDROXYZINE HCL [Concomitant]
     Dosage: 25 MG, 3/D
  6. LISINOPRIL [Concomitant]
     Dosage: UNK, DAILY (1/D)
  7. LUNESTA [Concomitant]
     Dosage: 3 MG, DAILY (1/D)
  8. PROMETHAZINE HCL [Concomitant]
     Dosage: UNK, AS NEEDED
  9. ERGOCALCIFEROL [Concomitant]
     Dosage: 5000 U, 3/W

REACTIONS (6)
  - ABDOMINAL DISCOMFORT [None]
  - FALL [None]
  - MALAISE [None]
  - MUSCLE INJURY [None]
  - SKIN LACERATION [None]
  - VOMITING [None]
